FAERS Safety Report 4300239-X (Version None)
Quarter: 2004Q1

REPORT INFORMATION
  Report Type: 
  Country: None (occurrence: None)
  Receive Date: 20040218
  Receipt Date: 20040209
  Transmission Date: 20041129
  Serious: No
  Sender: FDA-Public Use
  Company Number: 2004UW02257

PATIENT
  Age: 31 Year
  Sex: Male
  Weight: 70 kg

DRUGS (3)
  1. LOSEC [Suspect]
     Indication: GASTRITIS
     Dosage: 20 MG PO
     Route: 048
     Dates: start: 20030825
  2. FENYTOIN [Concomitant]
  3. WARFARIN [Concomitant]

REACTIONS (1)
  - CONVULSION [None]
